FAERS Safety Report 17138939 (Version 1)
Quarter: 2019Q4

REPORT INFORMATION
  Report Type: Spontaneous
  Country: US (occurrence: US)
  Receive Date: 20191210
  Receipt Date: 20191210
  Transmission Date: 20200122
  Serious: Yes (Hospitalization, Other)
  Sender: FDA-Public Use
  Company Number: None

PATIENT
  Age: 6 Year
  Sex: Female

DRUGS (1)
  1. MONTELUKAST [Suspect]
     Active Substance: MONTELUKAST SODIUM
     Indication: SLEEP APNOEA SYNDROME
     Route: 048
     Dates: start: 20190705, end: 20190906

REACTIONS (13)
  - Paranoia [None]
  - Grandiosity [None]
  - Aggression [None]
  - Insomnia [None]
  - Anxiety [None]
  - Behaviour disorder [None]
  - Drug withdrawal syndrome [None]
  - Impulsive behaviour [None]
  - Mood altered [None]
  - Psychomotor hyperactivity [None]
  - Depressed level of consciousness [None]
  - Nightmare [None]
  - Stereotypy [None]

NARRATIVE: CASE EVENT DATE: 20191018
